FAERS Safety Report 15379688 (Version 1)
Quarter: 2018Q3

REPORT INFORMATION
  Report Type: Spontaneous
  Country: US (occurrence: US)
  Receive Date: 20180913
  Receipt Date: 20180913
  Transmission Date: 20181010
  Serious: No
  Sender: FDA-Public Use
  Company Number: US-ASTELLAS-2017US036487

PATIENT
  Sex: Male

DRUGS (1)
  1. XTANDI [Suspect]
     Active Substance: ENZALUTAMIDE
     Indication: PROSTATE CANCER
     Route: 065
     Dates: start: 20170819

REACTIONS (8)
  - Vertigo [Recovered/Resolved]
  - Eye discharge [Unknown]
  - Bone pain [Recovered/Resolved]
  - Diarrhoea [Unknown]
  - Eyelid margin crusting [Unknown]
  - Muscular weakness [Unknown]
  - Fluid retention [Unknown]
  - Decreased appetite [Unknown]
